FAERS Safety Report 24229066 (Version 1)
Quarter: 2024Q3

REPORT INFORMATION
  Report Type: Spontaneous
  Country: US (occurrence: None)
  Receive Date: 20240819
  Receipt Date: 20240819
  Transmission Date: 20241017
  Serious: Yes (unspecified)
  Sender: Public
  Company Number: None

PATIENT
  Age: 80 Year
  Sex: Female

DRUGS (1)
  1. SCLERA CARE TOPICAL ANESTHETIC GEL [Suspect]
     Active Substance: LIDOCAINE HYDROCHLORIDE
     Dates: start: 20230713

REACTIONS (2)
  - Cellulitis orbital [None]
  - Post procedural complication [None]

NARRATIVE: CASE EVENT DATE: 20240722
